FAERS Safety Report 18634883 (Version 1)
Quarter: 2020Q4

REPORT INFORMATION
  Report Type: Report from Study
  Country: CO (occurrence: CO)
  Receive Date: 20201218
  Receipt Date: 20201218
  Transmission Date: 20210114
  Serious: Yes (Death, Other)
  Sender: FDA-Public Use
  Company Number: CO-BRISTOL-MYERS SQUIBB COMPANY-BMS-2020-107862

PATIENT
  Sex: Male

DRUGS (1)
  1. NIVOLUMAB [Suspect]
     Active Substance: NIVOLUMAB
     Indication: MALIGNANT MELANOMA
     Dosage: 180 MG, EVERY 15 DAYS
     Route: 042
     Dates: start: 20190430

REACTIONS (3)
  - Respiratory distress [Unknown]
  - Cardio-respiratory arrest [Fatal]
  - Off label use [Unknown]
